FAERS Safety Report 7380201 (Version 2)
Quarter: 2013Q1

REPORT INFORMATION
  Report Type: Spontaneous
  Country: US (occurrence: US)
  Receive Date: 20100507
  Receipt Date: 20130314
  Transmission Date: 20140127
  Serious: No
  Sender: FDA-Public Use
  Company Number: US-BIOGENIDEC-2010BI014951

PATIENT
  Age: 29 Year
  Sex: Female

DRUGS (2)
  1. TYSABRI [Suspect]
     Indication: MULTIPLE SCLEROSIS
     Route: 042
     Dates: start: 20091029, end: 20111222
  2. TYSABRI [Suspect]
     Indication: MULTIPLE SCLEROSIS
     Route: 042
     Dates: start: 20130226

REACTIONS (7)
  - Dermatitis contact [Recovered/Resolved]
  - Cough [Recovered/Resolved]
  - Costochondritis [Recovered/Resolved]
  - Blister [Recovered/Resolved]
  - Weight decreased [Recovered/Resolved]
  - Hypoaesthesia [Recovered/Resolved]
  - Bronchitis [Recovered/Resolved]
